FAERS Safety Report 13844194 (Version 1)
Quarter: 2017Q3

REPORT INFORMATION
  Report Type: Spontaneous
  Country: US (occurrence: US)
  Receive Date: 20170808
  Receipt Date: 20170808
  Transmission Date: 20171127
  Serious: Yes (Death)
  Sender: FDA-Public Use
  Company Number: US-DEPOMED, INC.-US-2016DEP012079

PATIENT

DRUGS (1)
  1. CAMBIA [Suspect]
     Active Substance: DICLOFENAC POTASSIUM
     Indication: FIBROMYALGIA
     Dosage: 50 MG, PRN, 1 PACKET WITH 1 TO 2 OUNCES OF WATER
     Route: 048
     Dates: start: 20160517, end: 20160903

REACTIONS (2)
  - Product use in unapproved indication [Not Recovered/Not Resolved]
  - Death [Fatal]

NARRATIVE: CASE EVENT DATE: 20160517
